FAERS Safety Report 4647302-1 (Version None)
Quarter: 2005Q2

REPORT INFORMATION
  Report Type: 
  Country: None (occurrence: None)
  Receive Date: 20050426
  Receipt Date: 20050419
  Transmission Date: 20051028
  Serious: Yes (Hospitalization)
  Sender: FDA-Public Use
  Company Number: 231521K05USA

PATIENT
  Age: 54 Year
  Sex: Female
  Weight: 117.5 kg

DRUGS (7)
  1. REBIF [Suspect]
     Indication: MULTIPLE SCLEROSIS
     Dosage: 44 MCG, 3 IN 1 WEEKS, SUBCUTANEOUS
     Route: 058
  2. BACLOFEN [Concomitant]
  3. ZANAFLEX [Concomitant]
  4. COZAAR [Concomitant]
  5. LOTRIAL (ENALAPRIL) [Concomitant]
  6. LORCET-HD [Concomitant]
  7. NEURONTIN [Concomitant]

REACTIONS (3)
  - GALLBLADDER ENLARGEMENT [None]
  - LIVER FUNCTION TEST ABNORMAL [None]
  - PANCREATITIS [None]
